FAERS Safety Report 21842083 (Version 1)
Quarter: 2023Q1

REPORT INFORMATION
  Report Type: Spontaneous
  Country: US (occurrence: US)
  Receive Date: 20230110
  Receipt Date: 20230110
  Transmission Date: 20230417
  Serious: Yes (Other)
  Sender: FDA-Public Use
  Company Number: US-ABBVIE-4263584

PATIENT
  Age: 74 Year
  Sex: Male

DRUGS (1)
  1. IMBRUVICA [Suspect]
     Active Substance: IBRUTINIB
     Indication: Waldenstrom^s macroglobulinaemia
     Dosage: START DATE TEXT: END OF  -JUL-2022
     Route: 048
     Dates: start: 202207

REACTIONS (3)
  - Cataract [Unknown]
  - Nasopharyngitis [Unknown]
  - Sinus disorder [Unknown]

NARRATIVE: CASE EVENT DATE: 20230101
